FAERS Safety Report 16254413 (Version 2)
Quarter: 2019Q2

REPORT INFORMATION
  Report Type: Spontaneous
  Country: US (occurrence: US)
  Receive Date: 20190430
  Receipt Date: 20190604
  Transmission Date: 20190711
  Serious: Yes (Death, Hospitalization, Other)
  Sender: FDA-Public Use
  Company Number: US-ROCHE-2308939

PATIENT
  Age: 51 Year
  Sex: Female
  Weight: 81.27 kg

DRUGS (1)
  1. RITUXAN [Suspect]
     Active Substance: RITUXIMAB
     Indication: RHEUMATOID ARTHRITIS
     Route: 065

REACTIONS (6)
  - Sepsis [Fatal]
  - Septic shock [Fatal]
  - Cardiogenic shock [Fatal]
  - Systemic lupus erythematosus [Unknown]
  - Claudication of jaw muscles [Not Recovered/Not Resolved]
  - Headache [Unknown]

NARRATIVE: CASE EVENT DATE: 20190327
